FAERS Safety Report 23068615 (Version 1)
Quarter: 2023Q4

REPORT INFORMATION
  Report Type: Spontaneous
  Country: US (occurrence: US)
  Receive Date: 20231016
  Receipt Date: 20231016
  Transmission Date: 20240109
  Serious: No
  Sender: FDA-Public Use
  Company Number: US-TORRENT-00012916

PATIENT
  Age: 57 Year
  Sex: Female

DRUGS (1)
  1. DICHLORPHENAMIDE [Suspect]
     Active Substance: DICHLORPHENAMIDE
     Indication: Paralysis
     Dosage: 50 MG, 2X/DAY
     Route: 048

REACTIONS (4)
  - Hypoaesthesia [Unknown]
  - Limb discomfort [Unknown]
  - Condition aggravated [Unknown]
  - Product substitution issue [Unknown]
